FAERS Safety Report 9187283 (Version 2)
Quarter: 2013Q2

REPORT INFORMATION
  Report Type: Spontaneous
  Country: CA (occurrence: CA)
  Receive Date: 20130325
  Receipt Date: 20130419
  Transmission Date: 20140414
  Serious: Yes (Other)
  Sender: FDA-Public Use
  Company Number: CA-AMGEN-CANSP2012080116

PATIENT
  Age: 15 Year
  Sex: Male
  Weight: 83 kg

DRUGS (8)
  1. ENBREL [Suspect]
     Indication: RHEUMATOID ARTHRITIS
     Dosage: 50 MG, QWK
     Route: 058
     Dates: start: 20120811, end: 20121204
  2. ENBREL [Suspect]
     Indication: JUVENILE IDIOPATHIC ARTHRITIS
  3. TOPAMAX [Concomitant]
     Indication: CONVULSION
     Dosage: UNK
     Route: 048
  4. CLONIDINE [Concomitant]
     Indication: AGGRESSION
     Dosage: UNK
     Route: 048
  5. LOXAPINE [Concomitant]
     Indication: AGGRESSION
     Dosage: UNK
     Route: 048
  6. TRILEPTAL [Concomitant]
     Indication: CONVULSION
     Dosage: UNK
     Route: 048
  7. METHOTREXATE [Concomitant]
     Indication: JUVENILE IDIOPATHIC ARTHRITIS
     Dosage: UNK
     Route: 048
  8. CLOZAPINE [Suspect]
     Indication: AGGRESSION
     Dosage: UNK
     Route: 048

REACTIONS (7)
  - Swelling face [Recovered/Resolved]
  - Dysphagia [Recovered/Resolved]
  - Restlessness [Recovered/Resolved]
  - Psychomotor hyperactivity [Recovered/Resolved]
  - Insomnia [Not Recovered/Not Resolved]
  - Lethargy [Not Recovered/Not Resolved]
  - Joint stiffness [Recovered/Resolved]
